FAERS Safety Report 19014876 (Version 1)
Quarter: 2021Q1

REPORT INFORMATION
  Report Type: Report from Study
  Country: JP (occurrence: JP)
  Receive Date: 20210317
  Receipt Date: 20210317
  Transmission Date: 20210420
  Serious: Yes (Other)
  Sender: FDA-Public Use
  Company Number: JP-CELLTRION INC.-2021JP003310

PATIENT

DRUGS (9)
  1. CT?P13 [Suspect]
     Active Substance: INFLIXIMAB-DYYB
     Indication: CROHN^S DISEASE
     Dosage: 500 MG; WEIGHT 49.5 KG
     Route: 041
     Dates: start: 20181222, end: 20181222
  2. CT?P13 [Suspect]
     Active Substance: INFLIXIMAB-DYYB
     Dosage: 500 MG; WEIGHT: 49.8 KG
     Route: 041
     Dates: start: 20191203, end: 20191203
  3. CT?P13 [Suspect]
     Active Substance: INFLIXIMAB-DYYB
     Dosage: 500 MG; WEIGHT 50.0 KG
     Route: 041
     Dates: start: 20190611, end: 20190611
  4. AZATHIOPRINE. [Concomitant]
     Active Substance: AZATHIOPRINE
     Dosage: 50 MG/DAY
     Route: 048
     Dates: start: 20161213
  5. CT?P13 [Suspect]
     Active Substance: INFLIXIMAB-DYYB
     Dosage: 500 MG; WEIGHT 50.2 KG
     Route: 041
     Dates: start: 20190216, end: 20190216
  6. CT?P13 [Suspect]
     Active Substance: INFLIXIMAB-DYYB
     Dosage: 500 MG; WEIGHT 50.7 KG
     Route: 041
     Dates: start: 20190416, end: 20190416
  7. MESALAZINE [Concomitant]
     Active Substance: MESALAMINE
     Dosage: 3000 MG/DAY
     Route: 048
  8. CT?P13 [Suspect]
     Active Substance: INFLIXIMAB-DYYB
     Dosage: 490 MG; WEIGHT 48.5 KG
     Route: 041
     Dates: start: 20210127, end: 20210127
  9. AZATHIOPRINE. [Concomitant]
     Active Substance: AZATHIOPRINE
     Dosage: 25 MG/DAY
     Route: 048
     Dates: start: 20201220

REACTIONS (4)
  - Off label use [Unknown]
  - Anal abscess [Recovered/Resolved]
  - Product use issue [Unknown]
  - Overdose [Unknown]

NARRATIVE: CASE EVENT DATE: 202101
